FAERS Safety Report 6796142-6 (Version None)
Quarter: 2010Q2

REPORT INFORMATION
  Report Type: 
  Country: None (occurrence: None)
  Receive Date: 20100625
  Receipt Date: 20100611
  Transmission Date: 20101027
  Serious: Yes (Death, Hospitalization)
  Sender: FDA-Public Use
  Company Number: DE-EISAI INC.-E2090-01198-SPO-DE

PATIENT
  Sex: Male
  Weight: 85 kg

DRUGS (19)
  1. ZONEGRAN [Suspect]
     Route: 048
     Dates: start: 20090801, end: 20100501
  2. ERGENYL CHRONO [Concomitant]
     Route: 048
     Dates: start: 20090801
  3. BETABION [Concomitant]
     Dates: start: 20100415
  4. NEXIUM [Concomitant]
     Dates: start: 20100415
  5. FENISTIL RETARD CAPS [Concomitant]
  6. TUTOFUSIN [Concomitant]
  7. ORGARAN 750 E [Concomitant]
     Dosage: 750 UNITS
     Route: 058
  8. KALINOR [Concomitant]
     Dosage: UNKNOWN
  9. RIVOTRIL [Concomitant]
     Dosage: UNKNOWN
     Dates: start: 20100420
  10. ACETYLCYSTEINE [Concomitant]
     Dosage: UNKNOWN
     Dates: start: 20100415
  11. KCL-P [Concomitant]
  12. AMINOMIX 1 [Concomitant]
  13. ARTERENOL [Concomitant]
  14. DORMICUM [Concomitant]
  15. PROPOFOL 2% [Concomitant]
  16. DELTAJONIN [Concomitant]
  17. FRISIUM [Concomitant]
     Dosage: UNKNOWN
     Dates: end: 20100501
  18. MIDAZOLAM HCL [Concomitant]
     Dosage: UNKNOWN
     Dates: end: 20100501
  19. VALPROATE SODIUM [Concomitant]
     Dosage: UNKNOWN
     Dates: start: 20100408, end: 20100415

REACTIONS (2)
  - PYELONEPHRITIS [None]
  - TOXIC EPIDERMAL NECROLYSIS [None]
